FAERS Safety Report 8789390 (Version 2)
Quarter: 2012Q4

REPORT INFORMATION
  Report Type: Spontaneous
  Country: US (occurrence: None)
  Receive Date: 20120905
  Receipt Date: 20120906
  Transmission Date: 20130627
  Serious: Yes (Hospitalization)
  Sender: FDA-Public Use
  Company Number: 2012SGN00370

PATIENT
  Age: 64 Year
  Sex: Male
  Weight: 87 kg

DRUGS (7)
  1. BRENTUXIMAB VEDOTIN [Suspect]
     Indication: HODGKIN^S LYMPHOMA
     Dates: start: 20120518, end: 20120629
  2. ADRIAMYCIN [Suspect]
     Indication: HODGKIN^S LYMPHOMA
     Dates: start: 20120615, end: 20120629
  3. VINBLASTINE [Suspect]
     Indication: HODGKIN^S LYMPHOMA
     Dates: start: 20120615, end: 20120629
  4. DACARBAZINE [Suspect]
     Indication: HODGKIN^S LYMPHOMA
     Dates: start: 20120615, end: 20120629
  5. ACYCLOVIR [Concomitant]
  6. ALBUTEROL SULFATE [Concomitant]
  7. PANTOPRAZOLE [Concomitant]

REACTIONS (1)
  - Febrile neutropenia [None]
